FAERS Safety Report 15709234 (Version 1)
Quarter: 2018Q4

REPORT INFORMATION
  Report Type: Spontaneous
  Country: US (occurrence: US)
  Receive Date: 20181211
  Receipt Date: 20181211
  Transmission Date: 20190205
  Serious: Yes (Other)
  Sender: FDA-Public Use
  Company Number: US-AKORN PHARMACEUTICALS-2018AKN01741

PATIENT
  Age: 57 Year
  Sex: Male
  Weight: 68.03 kg

DRUGS (9)
  1. MYORISAN [Suspect]
     Active Substance: ISOTRETINOIN
     Indication: ROSACEA
  2. MYORISAN [Suspect]
     Active Substance: ISOTRETINOIN
     Indication: RASH
  3. PREDNISONE. [Suspect]
     Active Substance: PREDNISONE
     Dosage: 40 MG, 1X/DAY
     Dates: start: 20181023, end: 201810
  4. MYORISAN [Suspect]
     Active Substance: ISOTRETINOIN
     Indication: NODULE
  5. FISH OIL [Concomitant]
     Active Substance: FISH OIL
  6. PREDNISONE. [Suspect]
     Active Substance: PREDNISONE
     Dosage: HIGH DOSE TAPER
     Dates: start: 20181115, end: 201811
  7. PREDNISONE. [Suspect]
     Active Substance: PREDNISONE
     Dosage: 1 DOSAGE UNITS, 1X/DAY
     Dates: start: 201811
  8. FLONASE [Concomitant]
     Active Substance: FLUTICASONE PROPIONATE
  9. MYORISAN [Suspect]
     Active Substance: ISOTRETINOIN
     Indication: ACNE CYSTIC
     Dosage: 10 MG, 1X/DAY
     Route: 048
     Dates: start: 20181023, end: 20181107

REACTIONS (7)
  - Drug hypersensitivity [Unknown]
  - Eye disorder [Unknown]
  - Rash [Not Recovered/Not Resolved]
  - Dyspepsia [Recovered/Resolved]
  - Eye discharge [Unknown]
  - Ocular hyperaemia [Unknown]
  - Off label use [Recovered/Resolved]

NARRATIVE: CASE EVENT DATE: 2018
